FAERS Safety Report 5266102-5 (Version None)
Quarter: 2007Q1

REPORT INFORMATION
  Report Type: 
  Country: None (occurrence: None)
  Receive Date: 20070315
  Receipt Date: 20070306
  Transmission Date: 20070707
  Serious: Yes (Other)
  Sender: FDA-Public Use
  Company Number: 2007UW02810

PATIENT
  Sex: Female

DRUGS (4)
  1. LOSEC [Suspect]
     Route: 048
  2. NORVASC [Concomitant]
     Route: 048
  3. ELTROXIN [Concomitant]
     Route: 048
  4. HYDROCHLOROTHIAZIDE [Concomitant]
     Route: 048

REACTIONS (2)
  - NEPHROSCLEROSIS [None]
  - RENAL FAILURE CHRONIC [None]
